FAERS Safety Report 17717413 (Version 1)
Quarter: 2020Q2

REPORT INFORMATION
  Report Type: Spontaneous
  Country: US (occurrence: US)
  Receive Date: 20200428
  Receipt Date: 20200428
  Transmission Date: 20200714
  Serious: No
  Sender: FDA-Public Use
  Company Number: US-PFIZER INC-2020165681

PATIENT
  Age: 40 Year
  Sex: Female
  Weight: 65.77 kg

DRUGS (2)
  1. ESTRING [Suspect]
     Active Substance: ESTRADIOL
     Indication: DYSPAREUNIA
     Dosage: 2 M (AS REPORTED)
     Dates: start: 2007
  2. ESTRING [Suspect]
     Active Substance: ESTRADIOL
     Indication: CYSTITIS

REACTIONS (8)
  - Off label use [Unknown]
  - Vein disorder [Unknown]
  - Product use in unapproved indication [Unknown]
  - Vulvovaginal discomfort [Unknown]
  - Product complaint [Unknown]
  - Migraine [Recovered/Resolved]
  - Hormone level abnormal [Unknown]
  - Drug effective for unapproved indication [Unknown]

NARRATIVE: CASE EVENT DATE: 2007
